FAERS Safety Report 11180354 (Version 1)
Quarter: 2015Q2

REPORT INFORMATION
  Report Type: Spontaneous
  Country: US (occurrence: None)
  Receive Date: 20150610
  Receipt Date: 20150610
  Transmission Date: 20150821
  Serious: Yes (Hospitalization)
  Sender: FDA-Public Use
  Company Number: None

PATIENT
  Age: 69 Year
  Sex: Female
  Weight: 101.83 kg

DRUGS (16)
  1. METFORMIN HYDROCHLORIDE. [Suspect]
     Active Substance: METFORMIN HYDROCHLORIDE
  2. AMLODIPINE [Concomitant]
     Active Substance: AMLODIPINE BESYLATE
  3. LEVOTHYROXINE [Concomitant]
     Active Substance: LEVOTHYROXINE
  4. OMEPRAZOLE. [Concomitant]
     Active Substance: OMEPRAZOLE
  5. ONDANSETRON [Concomitant]
     Active Substance: ONDANSETRON
  6. APREPITANT. [Concomitant]
     Active Substance: APREPITANT
  7. CHOLECALCIFEROL [Concomitant]
     Active Substance: CHOLECALCIFEROL
  8. NAPROXEN. [Concomitant]
     Active Substance: NAPROXEN
  9. DEXAMETHASONE. [Concomitant]
     Active Substance: DEXAMETHASONE
  10. VITAMIN B COMPLEX [Concomitant]
     Active Substance: CYANOCOBALAMIN\DEXPANTHENOL\NIACINAMIDE\PYRIDOXINE HYDROCHLORIDE\RIBOFLAVIN 5^-PHOSPHATE SODIUM\THIAMINE HYDROCHLORIDE\VITAMIN B COMPLEX
  11. ALIVE WOMENS 50+ [Concomitant]
  12. ASCORBIC ACID. [Concomitant]
     Active Substance: ASCORBIC ACID
  13. TRAMADOL [Concomitant]
     Active Substance: TRAMADOL
  14. HYDROCHLOROTHIAZIDE. [Concomitant]
     Active Substance: HYDROCHLOROTHIAZIDE
  15. OMEGA 3 FATTY ACIDS [Concomitant]
     Active Substance: OMEGA-3 FATTY ACIDS
  16. PROCHLORPERAZINE. [Concomitant]
     Active Substance: PROCHLORPERAZINE

REACTIONS (9)
  - Flatulence [None]
  - Blood potassium decreased [None]
  - Dehydration [None]
  - Heart rate increased [None]
  - Palpitations [None]
  - Blood sodium decreased [None]
  - Vomiting [None]
  - Blood magnesium decreased [None]
  - Asthenia [None]

NARRATIVE: CASE EVENT DATE: 20150605
